FAERS Safety Report 24131860 (Version 1)
Quarter: 2024Q3

REPORT INFORMATION
  Report Type: Report from Study
  Country: FR (occurrence: FR)
  Receive Date: 20240724
  Receipt Date: 20240724
  Transmission Date: 20241017
  Serious: Yes (Death)
  Sender: PFIZER
  Company Number: FR-SEATTLE GENETICS-2021SGN01903

PATIENT
  Age: 82 Year
  Sex: Female

DRUGS (3)
  1. TUCATINIB [Suspect]
     Active Substance: TUCATINIB
     Indication: HER2 positive breast cancer
     Dosage: TWICE DAILY WITH A 21-DAY TREATMENT CYCLE
     Route: 048
     Dates: start: 20210315, end: 20210317
  2. TRASTUZUMAB [Suspect]
     Active Substance: TRASTUZUMAB
     Indication: HER2 positive breast cancer
     Dosage: 600 MG, EVERY 3 WEEKS
     Route: 058
  3. XELODA [Suspect]
     Active Substance: CAPECITABINE
     Indication: HER2 positive breast cancer
     Dosage: 2X/DAY, DAYS 1 TO 14 OF A 21-DAY CYCLE
     Route: 048

REACTIONS (3)
  - Cardiac arrest [Fatal]
  - Asthenia [Fatal]
  - Diarrhoea [Fatal]

NARRATIVE: CASE EVENT DATE: 20210316
